FAERS Safety Report 6938771-2 (Version None)
Quarter: 2010Q3

REPORT INFORMATION
  Report Type: 
  Country: None (occurrence: None)
  Receive Date: 20100824
  Receipt Date: 20100811
  Transmission Date: 20110219
  Serious: Yes (Other)
  Sender: FDA-Public Use
  Company Number: DE-ROCHE-718334

PATIENT
  Sex: Male
  Weight: 80 kg

DRUGS (3)
  1. XELODA [Suspect]
     Indication: GASTRIC CANCER
     Dosage: THE 5TH CYCLE ACCORDING TO EOX PROTOCOL
     Route: 048
     Dates: start: 20100426, end: 20100722
  2. EPIRUBICIN [Suspect]
     Indication: GASTRIC CANCER
     Dosage: THE 5TH CYCLE ACCORDING TO EOX PROTOCOL
     Route: 042
     Dates: start: 20100426, end: 20100721
  3. OXALIPLATINE [Suspect]
     Indication: GASTRIC CANCER
     Dosage: THE 5TH CYCLE ACCORDING TO EOX PROTOCOL
     Route: 042
     Dates: start: 20100426, end: 20100721

REACTIONS (2)
  - LYMPHANGIOSIS CARCINOMATOSA [None]
  - METASTASES TO MENINGES [None]
